FAERS Safety Report 4901577-X (Version None)
Quarter: 2006Q1

REPORT INFORMATION
  Report Type: 
  Country: None (occurrence: None)
  Receive Date: 20060206
  Receipt Date: 20050419
  Transmission Date: 20060701
  Serious: No
  Sender: FDA-Public Use
  Company Number: US-BRISTOL-MYERS SQUIBB COMPANY-12939336

PATIENT
  Age: 44 Year
  Sex: Female
  Weight: 48 kg

DRUGS (9)
  1. TAXOL [Suspect]
     Indication: LUNG NEOPLASM MALIGNANT
     Route: 042
     Dates: start: 20050318, end: 20050318
  2. CARBOPLATIN [Suspect]
     Indication: LUNG NEOPLASM MALIGNANT
     Route: 042
     Dates: start: 20050318, end: 20050318
  3. LORTAB [Concomitant]
  4. ATIVAN [Concomitant]
  5. SUDAFED 12 HOUR [Concomitant]
  6. TYLENOL [Concomitant]
  7. PEPCID [Concomitant]
     Indication: PREMEDICATION
  8. BENADRYL [Concomitant]
     Indication: PREMEDICATION
  9. DECADRON PHOSPHATE [Concomitant]
     Indication: PREMEDICATION

REACTIONS (3)
  - ALOPECIA [None]
  - INFUSION SITE PAIN [None]
  - NAUSEA [None]
